FAERS Safety Report 4440355-5 (Version None)
Quarter: 2004Q3

REPORT INFORMATION
  Report Type: 
  Country: None (occurrence: None)
  Receive Date: 20040831
  Receipt Date: 20040831
  Transmission Date: 20050211
  Serious: Yes (Hospitalization)
  Sender: FDA-Public Use
  Company Number: None

PATIENT
  Age: 69 Year
  Sex: Male
  Weight: 62 kg

DRUGS (7)
  1. CARMUSTINE [Suspect]
     Indication: PERIPHERAL T-CELL LYMPHOMA UNSPECIFIED RECURRENT
     Dosage: 535 MG OVER 2 HOUR INTRAVENOUS
     Route: 042
     Dates: start: 20040630, end: 20040630
  2. VALACYCLOVIR HCL [Concomitant]
  3. BENADRYL [Concomitant]
  4. POTASSIUM CHLORIDE [Concomitant]
  5. MAGNESIUM OXIDE [Concomitant]
  6. NEUTRA PHOS [Concomitant]
  7. FAMOTIDINE [Concomitant]

REACTIONS (10)
  - ANXIETY [None]
  - CHEST DISCOMFORT [None]
  - CYANOSIS [None]
  - FLUSHING [None]
  - HEADACHE [None]
  - HYPOTENSION [None]
  - NAUSEA [None]
  - SENSATION OF PRESSURE [None]
  - SKIN DISCOLOURATION [None]
  - VOMITING [None]
